FAERS Safety Report 6412802-0 (Version None)
Quarter: 2009Q4

REPORT INFORMATION
  Report Type: 
  Country: None (occurrence: None)
  Receive Date: 20091023
  Receipt Date: 20091009
  Transmission Date: 20100525
  Serious: Yes (Death, Hospitalization)
  Sender: FDA-Public Use
  Company Number: TR-GENENTECH-267122

PATIENT
  Sex: Female

DRUGS (3)
  1. BEVACIZUMAB [Suspect]
     Indication: BREAST CANCER METASTATIC
     Dosage: 870 MG, Q3W
     Route: 042
     Dates: start: 20080110, end: 20080901
  2. CAPECITABINE [Concomitant]
     Indication: BREAST CANCER METASTATIC
     Dosage: 3000 MG, Q3W
     Route: 048
     Dates: start: 20080110
  3. DOCETAXEL [Concomitant]
     Indication: BREAST CANCER METASTATIC
     Dosage: 120 MG, Q3W
     Dates: start: 20080110

REACTIONS (4)
  - ANAL ABSCESS [None]
  - ANAL INFECTION [None]
  - SEPSIS [None]
  - SKIN NECROSIS [None]
